FAERS Safety Report 9860139 (Version 1)
Quarter: 2014Q1

REPORT INFORMATION
  Report Type: Report from Study
  Country: BR (occurrence: BR)
  Receive Date: 20140201
  Receipt Date: 20140201
  Transmission Date: 20141002
  Serious: Yes (Hospitalization)
  Sender: FDA-Public Use
  Company Number: BR-ROCHE-1342306

PATIENT
  Sex: Female
  Weight: 68 kg

DRUGS (3)
  1. MABTHERA [Suspect]
     Indication: RHEUMATOID ARTHRITIS
     Route: 042
     Dates: start: 20101120
  2. METICORTEN [Concomitant]
  3. AMYTRIL [Concomitant]

REACTIONS (2)
  - Femur fracture [Recovered/Resolved]
  - Neuropathy peripheral [Not Recovered/Not Resolved]
